FAERS Safety Report 4357417-3 (Version None)
Quarter: 2004Q2

REPORT INFORMATION
  Report Type: 
  Country: None (occurrence: None)
  Receive Date: 20040506
  Receipt Date: 20040422
  Transmission Date: 20050107
  Serious: Yes (Other)
  Sender: FDA-Public Use
  Company Number: 2004-00228FE

PATIENT
  Sex: Female

DRUGS (4)
  1. PENTASA [Suspect]
     Indication: COLITIS ULCERATIVE
     Dosage: 1500 MG/1000 MG/1500 MG
     Route: 048
     Dates: start: 20030331, end: 20030515
  2. PENTASA [Suspect]
     Indication: COLITIS ULCERATIVE
     Dosage: 1500 MG/1000 MG/1500 MG
     Route: 048
     Dates: start: 20030516, end: 20031201
  3. PENTASA [Suspect]
     Indication: COLITIS ULCERATIVE
     Dosage: 1500 MG/1000 MG/1500 MG
     Route: 048
     Dates: start: 20031201
  4. BIO THREE [Concomitant]

REACTIONS (2)
  - COLITIS ULCERATIVE [None]
  - SYSTEMIC LUPUS ERYTHEMATOSUS [None]
